FAERS Safety Report 5957592-0 (Version None)
Quarter: 2008Q4

REPORT INFORMATION
  Report Type: 
  Country: None (occurrence: None)
  Receive Date: 20081117
  Receipt Date: 20081117
  Transmission Date: 20090506
  Serious: No
  Sender: FDA-Public Use
  Company Number: None

PATIENT
  Sex: Female
  Weight: 56.6996 kg

DRUGS (1)
  1. ZOCOR [Suspect]
     Dates: start: 20060101, end: 20071101

REACTIONS (2)
  - ASTHENIA [None]
  - DIZZINESS [None]
